FAERS Safety Report 7903831-6 (Version None)
Quarter: 2011Q4

REPORT INFORMATION
  Report Type: 
  Country: None (occurrence: None)
  Receive Date: 20111109
  Receipt Date: 20111102
  Transmission Date: 20120403
  Serious: Yes (Hospitalization)
  Sender: FDA-Public Use
  Company Number: IT-BRISTOL-MYERS SQUIBB COMPANY-15952781

PATIENT
  Age: 39 Year
  Sex: Female

DRUGS (5)
  1. REYATAZ [Suspect]
     Indication: HIV INFECTION
     Dosage: 1DF=1 UNIT STARTED 22SEP10,SUSPENDED 01JUN11. REINTRO 24-JUN-2011
     Route: 048
     Dates: start: 20110624, end: 20110805
  2. VIDEX [Suspect]
     Dates: start: 20080901, end: 20110601
  3. TRUVADA [Suspect]
     Indication: HIV INFECTION
     Dosage: 24JUN11-UNK;43DAYS,INTERRUPTED ON 20JUL11
     Route: 048
     Dates: start: 20071221
  4. NORVIR [Suspect]
     Indication: HIV INFECTION
     Dosage: 1DF:100 UNITS NOS
     Route: 048
     Dates: start: 20110624, end: 20110805
  5. EPIVIR [Suspect]
     Dosage: SUSPENDED ON 01JUN2011
     Dates: start: 20080901, end: 20110601

REACTIONS (2)
  - PREGNANCY [None]
  - ABORTION SPONTANEOUS [None]
